FAERS Safety Report 8250835-2 (Version None)
Quarter: 2012Q2

REPORT INFORMATION
  Report Type: 
  Country: None (occurrence: None)
  Receive Date: 20120402
  Receipt Date: 20120323
  Transmission Date: 20120825
  Serious: Yes (Hospitalization)
  Sender: FDA-Public Use
  Company Number: PHEH2012US002256

PATIENT
  Sex: Male

DRUGS (5)
  1. PRILOSEC [Concomitant]
  2. HYDROCODONE BITARTRATE [Concomitant]
  3. VITAMINS NOS [Concomitant]
  4. AFINITOR [Suspect]
     Indication: METASTATIC RENAL CELL CARCINOMA
     Dosage: 10 MG, QD
     Route: 048
  5. COUMADIN [Concomitant]

REACTIONS (4)
  - SECRETION DISCHARGE [None]
  - RASH [None]
  - FLUID RETENTION [None]
  - STEVENS-JOHNSON SYNDROME [None]
